FAERS Safety Report 8456981-2 (Version None)
Quarter: 2012Q2

REPORT INFORMATION
  Report Type: 
  Country: None (occurrence: None)
  Receive Date: 20120621
  Receipt Date: 20120608
  Transmission Date: 20120825
  Serious: No
  Sender: FDA-Public Use
  Company Number: US-ASTRAZENECA-2012SE38720

PATIENT
  Sex: Female

DRUGS (3)
  1. PULMICORT FLEXHALER [Suspect]
     Route: 055
     Dates: start: 20120601
  2. WATER PILL DIURETIC [Concomitant]
  3. ALBUTEROL [Concomitant]

REACTIONS (2)
  - JOINT SWELLING [None]
  - ANXIETY [None]
